FAERS Safety Report 6083284-6 (Version None)
Quarter: 2009Q1

REPORT INFORMATION
  Report Type: 
  Country: None (occurrence: None)
  Receive Date: 20090219
  Receipt Date: 20090211
  Transmission Date: 20090719
  Serious: Yes (Other)
  Sender: FDA-Public Use
  Company Number: BR-BAYER-200912551LA

PATIENT
  Age: 41 Year
  Sex: Female

DRUGS (4)
  1. BETAFERON [Suspect]
     Indication: MULTIPLE SCLEROSIS
     Route: 058
     Dates: start: 20090210
  2. MANTIDAN [Concomitant]
     Indication: GAIT DISTURBANCE
     Dosage: TOTAL DAILY DOSE: 100 MG  UNIT DOSE: 100 MG
     Route: 048
     Dates: start: 20081201
  3. SIMVASTATIN [Concomitant]
     Indication: LIPIDS ABNORMAL
     Dosage: TOTAL DAILY DOSE: 10 MG  UNIT DOSE: 10 MG
     Route: 048
     Dates: start: 20060101, end: 20081201
  4. NEO AMITRIPTILIN [Concomitant]
     Indication: INSOMNIA
     Route: 048
     Dates: start: 20060101

REACTIONS (4)
  - BALANCE DISORDER [None]
  - FEELING COLD [None]
  - HEADACHE [None]
  - MONOPLEGIA [None]
